FAERS Safety Report 20540567 (Version 1)
Quarter: 2022Q1

REPORT INFORMATION
  Report Type: Report from Study
  Country: BR (occurrence: BR)
  Receive Date: 20220302
  Receipt Date: 20220302
  Transmission Date: 20220423
  Serious: Yes (Other)
  Sender: FDA-Public Use
  Company Number: BR-JNJFOC-20211128623

PATIENT
  Age: 63 Year
  Sex: Female
  Weight: 74 kg

DRUGS (1)
  1. REMICADE [Suspect]
     Active Substance: INFLIXIMAB
     Indication: Rheumatoid arthritis
     Route: 042
     Dates: end: 201904

REACTIONS (3)
  - Syncope [Recovered/Resolved]
  - Hypersensitivity [Recovered/Resolved]
  - Infusion related reaction [Recovered/Resolved]
